FAERS Safety Report 7584261-6 (Version None)
Quarter: 2011Q2

REPORT INFORMATION
  Report Type: 
  Country: None (occurrence: None)
  Receive Date: 20110531
  Receipt Date: 20100412
  Transmission Date: 20111010
  Serious: Yes (Life-Threatening, Hospitalization, Disabling, Other)
  Sender: FDA-Public Use
  Company Number: WAES 1004USA01664

PATIENT
  Age: 51 Year
  Sex: Male
  Weight: 76.6579 kg

DRUGS (15)
  1. COLACE [Concomitant]
  2. PLAVIX [Concomitant]
  3. PROTONIX [Concomitant]
  4. JANUMET [Suspect]
     Dosage: PO
     Route: 048
     Dates: start: 20091001, end: 20100410
  5. LOPRESSOR [Concomitant]
  6. NIASPAN [Concomitant]
  7. WELCHOL [Concomitant]
  8. CALCIUM CARBONATE [Concomitant]
  9. METFORMIN HCL [Concomitant]
  10. VITAMIN D [Concomitant]
  11. ALTACE [Concomitant]
  12. CIALIS [Concomitant]
  13. LOVAZA [Concomitant]
  14. ANUSOL HC (HYDROCORTISONE ACETAT [Concomitant]
  15. NITROGLYCERIN [Concomitant]

REACTIONS (1)
  - PANCREATITIS [None]
